FAERS Safety Report 12119333 (Version 2)
Quarter: 2016Q1

REPORT INFORMATION
  Report Type: Report from Study
  Country: US (occurrence: US)
  Receive Date: 20160226
  Receipt Date: 20160329
  Transmission Date: 20160526
  Serious: Yes (Other)
  Sender: FDA-Public Use
  Company Number: US-SA-2015SA140182

PATIENT
  Age: 66 Year
  Sex: Female

DRUGS (1)
  1. KYNAMRO [Suspect]
     Active Substance: MIPOMERSEN SODIUM
     Indication: TYPE IIA HYPERLIPIDAEMIA
     Dosage: DOSE: 200
     Route: 058
     Dates: start: 20150908, end: 201602

REACTIONS (17)
  - Hepatic enzyme increased [Recovering/Resolving]
  - Influenza like illness [Recovered/Resolved]
  - Injection site pain [Recovering/Resolving]
  - Abdominal discomfort [Recovering/Resolving]
  - Injection site inflammation [Unknown]
  - Feeling abnormal [Recovering/Resolving]
  - Injection site pain [Recovering/Resolving]
  - Injection site mass [Recovered/Resolved]
  - Injection site pain [Recovered/Resolved]
  - Influenza like illness [Recovered/Resolved]
  - Cataract operation [Recovering/Resolving]
  - Injection site pain [Recovered/Resolved]
  - Injection site mass [Recovering/Resolving]
  - Injection site erythema [Recovering/Resolving]
  - Injection site mass [Recovering/Resolving]
  - Malaise [Recovering/Resolving]
  - Injection site pain [Unknown]

NARRATIVE: CASE EVENT DATE: 2015
